FAERS Safety Report 4836634-X (Version None)
Quarter: 2005Q4

REPORT INFORMATION
  Report Type: 
  Country: None (occurrence: None)
  Receive Date: 20051121
  Receipt Date: 20051102
  Transmission Date: 20060501
  Serious: Yes (Hospitalization)
  Sender: FDA-Public Use
  Company Number: 6411

PATIENT
  Age: 78 Year
  Sex: Male

DRUGS (1)
  1. NITROGLYCERIN [Suspect]
     Indication: ANGINA PECTORIS
     Dosage: 4 SUBLINGUAL TABLETS
     Route: 060
     Dates: start: 20051029

REACTIONS (1)
  - DRUG INEFFECTIVE [None]
